FAERS Safety Report 4734571-2 (Version None)
Quarter: 2005Q3

REPORT INFORMATION
  Report Type: 
  Country: None (occurrence: None)
  Receive Date: 20050729
  Receipt Date: 20050718
  Transmission Date: 20060218
  Serious: Yes (Hospitalization)
  Sender: FDA-Public Use
  Company Number: HQWYE292720JUL05

PATIENT
  Age: 53 Year
  Sex: Male

DRUGS (9)
  1. RAPAMUNE [Suspect]
     Indication: HEART TRANSPLANT
     Dosage: 1 MG 5 DAYS/WEEK, 2 MG 2 DAYS/WEEK, ORAL
     Route: 048
     Dates: start: 20050205
  2. NEORAL [Concomitant]
  3. CELLCEPT [Concomitant]
  4. PREDNISONE [Concomitant]
  5. CARDIZEM [Concomitant]
  6. CLONIDINE [Concomitant]
  7. LASIX [Concomitant]
  8. MULTIVITAMINS,     PLAIN [Concomitant]
  9. COZAAR [Concomitant]

REACTIONS (4)
  - DYSPNOEA [None]
  - EJECTION FRACTION DECREASED [None]
  - HEART TRANSPLANT REJECTION [None]
  - OEDEMA [None]
